FAERS Safety Report 11096894 (Version 1)
Quarter: 2015Q2

REPORT INFORMATION
  Report Type: Spontaneous
  Country: US (occurrence: None)
  Receive Date: 20150506
  Receipt Date: 20150506
  Transmission Date: 20150821
  Serious: Yes (Life-Threatening, Hospitalization)
  Sender: FDA-Public Use
  Company Number: None

PATIENT
  Age: 77 Year
  Sex: Male
  Weight: 104.7 kg

DRUGS (2)
  1. ASPIRIN. [Suspect]
     Active Substance: ASPIRIN
     Route: 048
     Dates: end: 20150203
  2. WARFARIN [Suspect]
     Active Substance: WARFARIN
     Dosage: PM
     Route: 048
     Dates: start: 20130712, end: 20150203

REACTIONS (6)
  - Prothrombin time prolonged [None]
  - Gastrointestinal haemorrhage [None]
  - Haematocrit decreased [None]
  - International normalised ratio increased [None]
  - Haemoglobin increased [None]
  - Syncope [None]

NARRATIVE: CASE EVENT DATE: 20150203
